FAERS Safety Report 24376659 (Version 1)
Quarter: 2024Q3

REPORT INFORMATION
  Report Type: Spontaneous
  Country: US (occurrence: None)
  Receive Date: 20240927
  Receipt Date: 20240927
  Transmission Date: 20241016
  Serious: Yes (Life-Threatening, Hospitalization, Other)
  Sender: Public
  Company Number: None

PATIENT
  Age: 41 Year
  Sex: Female
  Weight: 90 kg

DRUGS (5)
  1. OZEMPIC [Suspect]
     Active Substance: SEMAGLUTIDE
     Indication: Weight decreased
     Route: 048
     Dates: start: 20240220, end: 20240305
  2. WEGOVY [Suspect]
     Active Substance: SEMAGLUTIDE
  3. RYBELSUS [Suspect]
     Active Substance: SEMAGLUTIDE
  4. UNSPECIFIED INGREDIENT [Concomitant]
     Active Substance: UNSPECIFIED INGREDIENT
  5. low blood pressure medicine [Concomitant]

REACTIONS (6)
  - Frequent bowel movements [None]
  - Diarrhoea [None]
  - Abdominal pain upper [None]
  - Renal pain [None]
  - Deep vein thrombosis [None]
  - Nephropathy [None]

NARRATIVE: CASE EVENT DATE: 20240222
